FAERS Safety Report 23868976 (Version 1)
Quarter: 2024Q2

REPORT INFORMATION
  Report Type: Report from Study
  Country: IT (occurrence: IT)
  Receive Date: 20240517
  Receipt Date: 20240517
  Transmission Date: 20240716
  Serious: Yes (Death, Hospitalization)
  Sender: FDA-Public Use
  Company Number: IT-JNJFOC-20240529390

PATIENT
  Age: 79 Year
  Sex: Female

DRUGS (1)
  1. IBRUTINIB [Suspect]
     Active Substance: IBRUTINIB
     Indication: Mantle cell lymphoma
     Route: 048
     Dates: start: 20231004, end: 20240327

REACTIONS (2)
  - Hypoxia [Fatal]
  - Pyrexia [Fatal]

NARRATIVE: CASE EVENT DATE: 20240331
